FAERS Safety Report 4825656-0 (Version None)
Quarter: 2005Q4

REPORT INFORMATION
  Report Type: 
  Country: None (occurrence: None)
  Receive Date: 20051111
  Receipt Date: 20051019
  Transmission Date: 20060501
  Serious: Yes (Other)
  Sender: FDA-Public Use
  Company Number: JP-AVENTIS-200513073JP

PATIENT
  Age: 40 Year
  Sex: Female

DRUGS (5)
  1. LANTUS [Suspect]
     Indication: DIABETES MELLITUS INSULIN-DEPENDENT
     Route: 058
  2. OPTIPEN (INSULIN PUMP) [Suspect]
  3. HUMACART 3/7 [Suspect]
     Indication: DIABETES MELLITUS INSULIN-DEPENDENT
     Dosage: DOSE: 10-0-8
     Route: 058
     Dates: start: 20030301
  4. HUMALOG [Suspect]
     Indication: DIABETES MELLITUS INSULIN-DEPENDENT
     Dosage: DOSE: 0-6-0
     Route: 058
     Dates: start: 20030301
  5. NOVORAPID [Suspect]
     Indication: DIABETES MELLITUS INSULIN-DEPENDENT

REACTIONS (2)
  - DRUG HYPERSENSITIVITY [None]
  - INJECTION SITE REACTION [None]
